FAERS Safety Report 6611446-5 (Version None)
Quarter: 2010Q1

REPORT INFORMATION
  Report Type: 
  Country: None (occurrence: None)
  Receive Date: 20100218
  Receipt Date: 20091014
  Transmission Date: 20100710
  Serious: No
  Sender: FDA-Public Use
  Company Number: WAES 0910USA01778

PATIENT
  Age: 45 Year
  Sex: Female

DRUGS (4)
  1. ISENTRESS [Suspect]
     Indication: HIV INFECTION
     Dosage: 400 MG/BID/PO
     Route: 048
     Dates: start: 20090901, end: 20091009
  2. EPZICOM [Concomitant]
  3. LOPID [Concomitant]
  4. METFORMIN HCL [Concomitant]

REACTIONS (1)
  - RASH PRURITIC [None]
